FAERS Safety Report 4853627-7 (Version None)
Quarter: 2005Q4

REPORT INFORMATION
  Report Type: 
  Country: None (occurrence: None)
  Receive Date: 20051214
  Receipt Date: 20051128
  Transmission Date: 20060501
  Serious: Yes (Hospitalization, Other)
  Sender: FDA-Public Use
  Company Number: 2005PK02300

PATIENT
  Age: 27391 Day
  Sex: Female
  Weight: 73 kg

DRUGS (1)
  1. NOLVADEX [Suspect]
     Indication: BREAST CANCER FEMALE
     Route: 048
     Dates: start: 20010327, end: 20051002

REACTIONS (2)
  - CYST [None]
  - ENDOMETRIAL HYPERPLASIA [None]
